FAERS Safety Report 16369372 (Version 3)
Quarter: 2019Q2

REPORT INFORMATION
  Report Type: Spontaneous
  Country: CA (occurrence: CA)
  Receive Date: 20190529
  Receipt Date: 20190610
  Transmission Date: 20190711
  Serious: Yes (Other)
  Sender: FDA-Public Use
  Company Number: CA-CELLTRION INC.-2018CA018725

PATIENT

DRUGS (17)
  1. INFLECTRA [Suspect]
     Active Substance: INFLIXIMAB-DYYB
     Dosage: 426 MG, EVERY 8 WEEKS
     Route: 042
     Dates: start: 20181211
  2. HYDROXYCHLOROQUINE [Concomitant]
     Active Substance: HYDROXYCHLOROQUINE
     Dosage: 200 MG, UNK
  3. ZOPICLONE [Concomitant]
     Active Substance: ZOPICLONE
     Dosage: 7.5 MG, UNK
  4. NOVO VENLAFAXINE [Concomitant]
     Dosage: 75 MG, UNK
  5. CYMBALTA [Concomitant]
     Active Substance: DULOXETINE HYDROCHLORIDE
     Dosage: 60 MG, UNK
  6. INFLECTRA [Suspect]
     Active Substance: INFLIXIMAB-DYYB
     Dosage: 396 MG, EVERY 8 WEEKS
     Route: 042
     Dates: start: 20190401, end: 20190401
  7. METHOTREXATE SODIUM. [Concomitant]
     Active Substance: METHOTREXATE SODIUM
     Indication: RHEUMATOID ARTHRITIS
     Dosage: 20 MG, WEEKLY
     Route: 048
  8. OXYCODONE [Concomitant]
     Active Substance: OXYCODONE
     Dosage: 325 MG, AS NEEDED
  9. ESCITALOPRAM [Concomitant]
     Active Substance: ESCITALOPRAM OXALATE
     Dosage: 10 MG, UNK
  10. FOLIC ACID. [Concomitant]
     Active Substance: FOLIC ACID
     Dosage: 5 MG, UNK
  11. INFLECTRA [Suspect]
     Active Substance: INFLIXIMAB-DYYB
     Indication: RHEUMATOID ARTHRITIS
     Dosage: 500 MG, EVERY 0, 2, 6 WEEKS THEN EVERY 8 WEEKS
     Route: 042
     Dates: start: 20171121, end: 20180227
  12. INFLECTRA [Suspect]
     Active Substance: INFLIXIMAB-DYYB
     Dosage: 360 MG, CYCLIC EVERY 8 WEEKS
     Route: 042
     Dates: start: 20190527
  13. INFLECTRA [Suspect]
     Active Substance: INFLIXIMAB-DYYB
     Dosage: 426 MG, EVERY 8 WEEKS
     Route: 042
     Dates: start: 20180424, end: 20190402
  14. INFLECTRA [Suspect]
     Active Substance: INFLIXIMAB-DYYB
     Dosage: 426 MG, EVERY 8 WEEKS
     Route: 042
     Dates: start: 20180814, end: 2018
  15. INFLECTRA [Suspect]
     Active Substance: INFLIXIMAB-DYYB
     Dosage: 426 MG, EVERY 8 WEEKS
     Route: 042
     Dates: start: 20190204, end: 20190204
  16. AMLODIPINE [Concomitant]
     Active Substance: AMLODIPINE BESYLATE
     Dosage: 5 MILLIGRAM
  17. VITALUX /00322001/ [Concomitant]
     Indication: EYE DISORDER
     Dosage: UNK

REACTIONS (14)
  - Fall [Unknown]
  - Ear pain [Unknown]
  - Oropharyngeal pain [Unknown]
  - Product use issue [Unknown]
  - Ear infection [Recovered/Resolved]
  - Productive cough [Unknown]
  - Weight decreased [Not Recovered/Not Resolved]
  - Infection [Not Recovered/Not Resolved]
  - Contusion [Not Recovered/Not Resolved]
  - Nasopharyngitis [Not Recovered/Not Resolved]
  - Malaise [Unknown]
  - Mass [Unknown]
  - Ear swelling [Unknown]
  - Product use issue [Unknown]

NARRATIVE: CASE EVENT DATE: 20180227
